FAERS Safety Report 8080858-8 (Version None)
Quarter: 2012Q1

REPORT INFORMATION
  Report Type: 
  Country: None (occurrence: None)
  Receive Date: 20120130
  Receipt Date: 20111227
  Transmission Date: 20120608
  Serious: No
  Sender: FDA-Public Use
  Company Number: US-MUTUAL PHARMACEUTICAL COMPANY, INC.-CLCY20110162

PATIENT
  Sex: Male
  Weight: 72.64 kg

DRUGS (7)
  1. COLCRYS [Suspect]
     Indication: GOUT
     Route: 065
     Dates: start: 20111222, end: 20111222
  2. FUROSEMIDE [Concomitant]
     Indication: PRODUCT USED FOR UNKNOWN INDICATION
     Route: 048
  3. GLYBURIDE [Concomitant]
     Indication: DIABETES MELLITUS
     Route: 048
  4. INSULIN [Concomitant]
     Indication: DIABETES MELLITUS
     Route: 058
  5. LISINOPRIL [Concomitant]
     Indication: HYPERTENSION
     Route: 048
  6. METOPROLOL TARTRATE [Concomitant]
     Indication: HYPERTENSION
     Route: 048
  7. DOCUSATE SODIUM [Concomitant]
     Indication: CONSTIPATION
     Route: 048

REACTIONS (2)
  - ABDOMINAL DISCOMFORT [None]
  - DIZZINESS [None]
